FAERS Safety Report 15852942 (Version 1)
Quarter: 2019Q1

REPORT INFORMATION
  Report Type: Spontaneous
  Country: US (occurrence: US)
  Receive Date: 20190118
  Receipt Date: 20190118
  Transmission Date: 20190417
  Serious: Yes (Hospitalization)
  Sender: FDA-Public Use
  Company Number: None

PATIENT
  Age: 42 Year
  Sex: Male

DRUGS (5)
  1. DONEPEZIL. [Concomitant]
     Active Substance: DONEPEZIL
     Dates: start: 20180829
  2. CLOZAPINE. [Suspect]
     Active Substance: CLOZAPINE
     Indication: PSYCHOTIC DISORDER
     Route: 048
     Dates: start: 20160701, end: 20181210
  3. GLYCOPYRROLATE. [Concomitant]
     Active Substance: GLYCOPYRROLATE
     Dates: start: 20180424
  4. LAMOTRIGINE. [Suspect]
     Active Substance: LAMOTRIGINE
     Indication: SEIZURE
     Route: 048
     Dates: start: 20181127, end: 20181212
  5. SIMVASTATIN. [Concomitant]
     Active Substance: SIMVASTATIN

REACTIONS (5)
  - Intentional product use issue [None]
  - Generalised tonic-clonic seizure [None]
  - Fall [None]
  - Head injury [None]
  - Neutropenia [None]

NARRATIVE: CASE EVENT DATE: 20181213
